FAERS Safety Report 7739620-5 (Version None)
Quarter: 2011Q3

REPORT INFORMATION
  Report Type: 
  Country: None (occurrence: None)
  Receive Date: 20110909
  Receipt Date: 20110830
  Transmission Date: 20111222
  Serious: Yes (Death)
  Sender: FDA-Public Use
  Company Number: US-MYLANLABS-2011S1015576

PATIENT
  Age: 35 Year
  Sex: Male
  Weight: 65.77 kg

DRUGS (2)
  1. FENTANYL-100 [Suspect]
     Route: 062
  2. FENTANYL-100 [Suspect]
     Route: 062

REACTIONS (5)
  - INTENTIONAL DRUG MISUSE [None]
  - DRUG ABUSE [None]
  - EXPIRED DRUG ADMINISTERED [None]
  - COMPLETED SUICIDE [None]
  - OVERDOSE [None]
